FAERS Safety Report 5523774-5 (Version None)
Quarter: 2007Q4

REPORT INFORMATION
  Report Type: 
  Country: None (occurrence: None)
  Receive Date: 20071119
  Receipt Date: 20071107
  Transmission Date: 20080405
  Serious: Yes (Hospitalization)
  Sender: FDA-Public Use
  Company Number: E3810-01368-SPO-AU

PATIENT
  Age: 65 Year
  Sex: Female

DRUGS (5)
  1. RABEPRAZOLE SODIUM [Suspect]
     Indication: DYSPEPSIA
     Dosage: ORAL
     Route: 048
     Dates: end: 20070615
  2. CLOPIDOGREL [Concomitant]
  3. VERPAMIL (VERAPAMIL HYDROCHLORIDE) [Concomitant]
  4. RAMIPRIL [Concomitant]
  5. IKOREL (NICORANDIL) [Concomitant]

REACTIONS (1)
  - ATRIAL FIBRILLATION [None]
